FAERS Safety Report 5655236-9 (Version None)
Quarter: 2008Q1

REPORT INFORMATION
  Report Type: 
  Country: None (occurrence: None)
  Receive Date: 20080307
  Receipt Date: 20080303
  Transmission Date: 20080703
  Serious: Yes (Death)
  Sender: FDA-Public Use
  Company Number: A0699081A

PATIENT
  Age: 32 Year
  Sex: Male
  Weight: 95.9 kg

DRUGS (4)
  1. ADVAIR DISKUS 100/50 [Suspect]
     Indication: ASTHMA
     Dosage: 1PUFF TWICE PER DAY
     Route: 055
     Dates: end: 20051214
  2. PREDNISONE TAB [Concomitant]
     Dosage: 10MG PER DAY
     Dates: end: 20051201
  3. COMBIVENT [Concomitant]
     Dosage: 2PUFF AS REQUIRED
     Route: 055
  4. ALBUTEROL [Concomitant]

REACTIONS (8)
  - ANOXIC ENCEPHALOPATHY [None]
  - ASTHMA [None]
  - CHEST DISCOMFORT [None]
  - CHRONIC OBSTRUCTIVE PULMONARY DISEASE [None]
  - LUNG HYPERINFLATION [None]
  - RESPIRATORY ARREST [None]
  - TACHYCARDIA [None]
  - WHEEZING [None]
